FAERS Safety Report 7518863-X (Version None)
Quarter: 2011Q2

REPORT INFORMATION
  Report Type: 
  Country: None (occurrence: None)
  Receive Date: 20110602
  Receipt Date: 20110527
  Transmission Date: 20111010
  Serious: Yes (Other)
  Sender: FDA-Public Use
  Company Number: US-BRISTOL-MYERS SQUIBB COMPANY-15784499

PATIENT
  Age: 46 Year
  Sex: Male

DRUGS (4)
  1. METOPROLOL TARTRATE [Concomitant]
     Dates: start: 20110101
  2. PHENERGAN HCL [Concomitant]
     Dates: start: 20110513
  3. IPILIMUMAB [Suspect]
     Indication: MALIGNANT MELANOMA
     Route: 042
     Dates: start: 20110415
  4. NORCO [Concomitant]
     Dosage: NORCO 7.5/325
     Dates: start: 20110520

REACTIONS (1)
  - CEREBRAL HAEMORRHAGE [None]
